FAERS Safety Report 11311193 (Version 3)
Quarter: 2015Q4

REPORT INFORMATION
  Report Type: Report from Study
  Country: UY (occurrence: UY)
  Receive Date: 20150727
  Receipt Date: 20151021
  Transmission Date: 20160304
  Serious: Yes (Other)
  Sender: FDA-Public Use
  Company Number: UY-ROCHE-1497784

PATIENT
  Sex: Male

DRUGS (6)
  1. OXALIPLATIN. [Suspect]
     Active Substance: OXALIPLATIN
     Indication: RECTAL CANCER METASTATIC
     Route: 065
  2. XELODA [Suspect]
     Active Substance: CAPECITABINE
     Route: 048
  3. AVASTIN [Suspect]
     Active Substance: BEVACIZUMAB
     Indication: PRODUCT USED FOR UNKNOWN INDICATION
     Route: 065
  4. XELODA [Suspect]
     Active Substance: CAPECITABINE
     Indication: RECTAL CANCER METASTATIC
     Dosage: HE IS ON 5TH SERIES
     Route: 048
     Dates: start: 20141126, end: 20150113
  5. IRINOTECAN [Suspect]
     Active Substance: IRINOTECAN
     Indication: GASTROINTESTINAL CANCER METASTATIC
     Route: 065
  6. INSULIN [Suspect]
     Active Substance: INSULIN NOS
     Indication: TYPE 2 DIABETES MELLITUS
     Route: 065

REACTIONS (15)
  - Thrombocytopenia [Recovering/Resolving]
  - Influenza [Unknown]
  - Cough [Not Recovered/Not Resolved]
  - Pain [Unknown]
  - Peripheral swelling [Recovered/Resolved]
  - Diarrhoea [Unknown]
  - Gait disturbance [Unknown]
  - Palmar-plantar erythrodysaesthesia syndrome [Recovering/Resolving]
  - Type 2 diabetes mellitus [Unknown]
  - Pyrexia [Recovering/Resolving]
  - Hyperchlorhydria [Unknown]
  - Venous injury [Unknown]
  - Constipation [Unknown]
  - Deafness [Recovered/Resolved]
  - Haematoma [Unknown]
